FAERS Safety Report 6489712-6 (Version None)
Quarter: 2009Q4

REPORT INFORMATION
  Report Type: 
  Country: None (occurrence: None)
  Receive Date: 20091207
  Receipt Date: 20091123
  Transmission Date: 20100525
  Serious: Yes (Hospitalization)
  Sender: FDA-Public Use
  Company Number: 2009AC000089

PATIENT
  Age: 55 Year
  Sex: Female

DRUGS (30)
  1. DIGOXIN [Suspect]
     Dosage: 0.125 MG; QOD; PO
     Route: 048
  2. ACCUPRIL [Concomitant]
  3. COREG [Concomitant]
  4. NEPHROCAPS [Concomitant]
  5. EFFEXOR [Concomitant]
  6. AMBIEN [Concomitant]
  7. HYDROXYZINE [Concomitant]
  8. LORCET-HD [Concomitant]
  9. PHOSLO [Concomitant]
  10. IMDUR [Concomitant]
  11. INSULIN [Concomitant]
  12. LIPITOR [Concomitant]
  13. BACTRIM [Concomitant]
  14. LASIX [Concomitant]
  15. IRON [Concomitant]
  16. ASPIRIN [Concomitant]
  17. NOVOLIN [Concomitant]
  18. MONOPRIL [Concomitant]
  19. HYDROCODONE [Concomitant]
  20. OXYCODONE [Concomitant]
  21. LISINOPRIL [Concomitant]
  22. BUMEX [Concomitant]
  23. IMDUR [Concomitant]
  24. NIFEDIPINE [Concomitant]
  25. ASCORBIC ACID [Concomitant]
  26. ZINC SULFATE [Concomitant]
  27. SPIRONOLACTONE [Concomitant]
  28. HYDROCHLOROTHIAZIDE [Concomitant]
  29. FOSINOPRIL SODIUM [Concomitant]
  30. ASPIRIN [Concomitant]

REACTIONS (42)
  - ANAEMIA [None]
  - ASTHENIA [None]
  - BLADDER PROLAPSE [None]
  - BLOOD CREATININE INCREASED [None]
  - BLOOD PRESSURE INCREASED [None]
  - CARDIAC FAILURE CONGESTIVE [None]
  - CARDIAC VALVE DISEASE [None]
  - CARPAL TUNNEL SYNDROME [None]
  - CERVICOBRACHIAL SYNDROME [None]
  - CHEST PAIN [None]
  - CHRONIC OBSTRUCTIVE PULMONARY DISEASE [None]
  - CONDITION AGGRAVATED [None]
  - CORONARY ARTERY DISEASE [None]
  - DECREASED APPETITE [None]
  - DEPRESSION [None]
  - DIABETES MELLITUS [None]
  - DYSLIPIDAEMIA [None]
  - DYSPNOEA [None]
  - HYPERLIPIDAEMIA [None]
  - HYPERTENSION [None]
  - HYPERVENTILATION [None]
  - HYPOAESTHESIA [None]
  - MULTIPLE INJURIES [None]
  - MUSCULAR WEAKNESS [None]
  - NECK PAIN [None]
  - NEUROPATHIC ARTHROPATHY [None]
  - OEDEMA PERIPHERAL [None]
  - ORTHOSTATIC HYPOTENSION [None]
  - OSTEOARTHRITIS [None]
  - PAIN [None]
  - PAIN IN EXTREMITY [None]
  - PARAESTHESIA [None]
  - PERIORBITAL OEDEMA [None]
  - PRESYNCOPE [None]
  - RENAL FAILURE ACUTE [None]
  - RENAL FAILURE CHRONIC [None]
  - SWELLING [None]
  - SYNCOPE [None]
  - UNEVALUABLE EVENT [None]
  - URINARY TRACT INFECTION [None]
  - VOMITING [None]
  - WEIGHT INCREASED [None]
